FAERS Safety Report 9526544 (Version 4)
Quarter: 2013Q4

REPORT INFORMATION
  Report Type: Spontaneous
  Country: JP (occurrence: JP)
  Receive Date: 20130916
  Receipt Date: 20131230
  Transmission Date: 20140711
  Serious: Yes (Hospitalization)
  Sender: FDA-Public Use
  Company Number: JP-AMGEN-JPNSP2013064683

PATIENT
  Age: 77 Year
  Sex: Male
  Weight: 44 kg

DRUGS (8)
  1. ARANESP [Suspect]
     Indication: NEPHROGENIC ANAEMIA
     Dosage: 120 MUG, QD
     Route: 058
     Dates: start: 20121201, end: 20130326
  2. ADALAT [Concomitant]
     Dosage: UNK
     Route: 048
  3. ENALAPRIL [Concomitant]
     Dosage: UNK
     Route: 048
  4. ARTIST [Concomitant]
     Dosage: UNK
     Route: 048
  5. JUSO [Concomitant]
     Dosage: UNK
     Route: 048
  6. FRANDOL S [Concomitant]
     Dosage: UNK
     Route: 062
  7. NEWTOLIDE [Concomitant]
     Dosage: 12.5 MG, UNK
     Route: 048
     Dates: start: 20130428, end: 20130428
  8. FUROSEMIDE [Concomitant]
     Dosage: 10 MG, UNK
     Route: 048

REACTIONS (2)
  - Hypertension [Recovered/Resolved]
  - Hepatic function abnormal [Recovering/Resolving]
